FAERS Safety Report 10223449 (Version 1)
Quarter: 2014Q2

REPORT INFORMATION
  Report Type: Spontaneous
  Country: AU (occurrence: AU)
  Receive Date: 20140609
  Receipt Date: 20140609
  Transmission Date: 20141212
  Serious: Yes (Other)
  Sender: FDA-Public Use
  Company Number: AU-009507513-1406AUS000371

PATIENT
  Sex: Female

DRUGS (5)
  1. PEGINTERFERON ALFA-2B [Suspect]
     Dosage: 180 MICROGRAM, WEEKLY
     Dates: start: 20130521
  2. RIBAVIRIN [Suspect]
     Dosage: 600 MG DAILY
     Route: 048
     Dates: start: 20130521
  3. TELAPREVIR [Suspect]
     Dosage: 750 MG, DAILY
     Route: 048
     Dates: start: 20130521, end: 20130809
  4. CITALOPRAM HYDROBROMIDE [Concomitant]
     Dosage: 20 MG, DAILY
     Route: 048
     Dates: start: 20130605
  5. TRIAMCINOLONE [Concomitant]
     Dosage: 2 DOSAGE UNITS DAILY
     Dates: start: 20130621

REACTIONS (1)
  - Hypoacusis [Unknown]
